FAERS Safety Report 21400317 (Version 1)
Quarter: 2022Q4

REPORT INFORMATION
  Report Type: Spontaneous
  Country: US (occurrence: US)
  Receive Date: 20221002
  Receipt Date: 20221002
  Transmission Date: 20230113
  Serious: Yes (Other)
  Sender: FDA-Public Use
  Company Number: US-BEH-2022150087

PATIENT
  Sex: Female

DRUGS (1)
  1. CORIFACT [Suspect]
     Active Substance: FACTOR XIII CONCENTRATE (HUMAN)
     Indication: Abnormal clotting factor
     Dosage: 2400 INTERNATIONAL UNIT, EVERY 28 DAYS
     Route: 042
     Dates: start: 202101

REACTIONS (2)
  - Haemorrhage [Unknown]
  - Tooth infection [Unknown]
